FAERS Safety Report 10946685 (Version 1)
Quarter: 2015Q1

REPORT INFORMATION
  Report Type: Report from Study
  Country: FR (occurrence: FR)
  Receive Date: 20150323
  Receipt Date: 20150323
  Transmission Date: 20150721
  Serious: Yes (Hospitalization)
  Sender: FDA-Public Use
  Company Number: FR-INTERMUNE, INC.-201309IM004252

PATIENT
  Age: 78 Year
  Sex: Female
  Weight: 58 kg

DRUGS (31)
  1. BRICANYL [Concomitant]
     Active Substance: TERBUTALINE SULFATE
     Indication: COUGH
     Dates: start: 20130927
  2. CLAFORAN [Concomitant]
     Active Substance: CEFOTAXIME SODIUM
     Indication: COUGH
     Dates: start: 20130927, end: 20131004
  3. AMITRIPTYLINE [Concomitant]
     Active Substance: AMITRIPTYLINE
     Indication: NEUROPATHY PERIPHERAL
     Dates: start: 20131129, end: 20131212
  4. DIAMICRON [Concomitant]
     Active Substance: GLICLAZIDE
     Indication: DIABETES MELLITUS
     Dates: start: 20131002
  5. TRIATEC [Concomitant]
     Active Substance: RAMIPRIL
     Indication: HYPERTENSION
  6. AUGMENTIN [Concomitant]
     Active Substance: AMOXICILLIN\CLAVULANATE POTASSIUM
     Indication: COUGH
     Dates: start: 20130917, end: 20130924
  7. PREGABALIN. [Concomitant]
     Active Substance: PREGABALIN
     Dates: start: 20131213
  8. SPIRAMYCINE [Concomitant]
     Active Substance: SPIRAMYCIN
     Indication: BRONCHOSPASM
  9. GLICLAZIDE 30 [Concomitant]
     Indication: DIABETES MELLITUS
  10. CORTANCYL [Concomitant]
     Active Substance: PREDNISONE
     Indication: BRONCHOSPASM
     Dates: start: 20130929, end: 20131002
  11. ROVAMYCINE [Concomitant]
     Active Substance: SPIRAMYCIN
     Indication: COUGH
     Dates: start: 20130927, end: 20131011
  12. CORTANCYL [Concomitant]
     Active Substance: PREDNISONE
     Dates: start: 20131003, end: 20131004
  13. CORTANCYL [Concomitant]
     Active Substance: PREDNISONE
     Dates: start: 20131005, end: 20131006
  14. CORTANCYL [Concomitant]
     Active Substance: PREDNISONE
     Dates: start: 20131007, end: 20131008
  15. CORTANCYL [Concomitant]
     Active Substance: PREDNISONE
     Dates: start: 20131009, end: 20131010
  16. AMITRIPTYLINE [Concomitant]
     Active Substance: AMITRIPTYLINE
     Dates: start: 20131213
  17. PREGABALIN. [Concomitant]
     Active Substance: PREGABALIN
     Indication: NEUROPATHY PERIPHERAL
     Dates: start: 20131203, end: 20131212
  18. CLAFORAN [Concomitant]
     Active Substance: CEFOTAXIME SODIUM
     Indication: BRONCHOSPASM
  19. TRAMADOL [Concomitant]
     Active Substance: TRAMADOL
     Indication: NEUROPATHY PERIPHERAL
     Dates: start: 20131202, end: 20131212
  20. GAVISCON [Concomitant]
     Active Substance: ALUMINUM HYDROXIDE\MAGNESIUM CARBONATE
     Indication: GASTROOESOPHAGEAL REFLUX DISEASE
     Dates: start: 20131004
  21. ESBRIET [Suspect]
     Active Substance: PIRFENIDONE
     Indication: IDIOPATHIC PULMONARY FIBROSIS
     Dosage: 2403 MG
     Route: 048
     Dates: start: 20130816, end: 20130927
  22. ESBRIET [Suspect]
     Active Substance: PIRFENIDONE
     Dosage: 1602 MG
     Route: 048
     Dates: start: 20131003, end: 20131112
  23. INEXIUM [Concomitant]
     Active Substance: ESOMEPRAZOLE
     Dates: start: 20131003
  24. LIDOCAINE 5% [Concomitant]
     Active Substance: LIDOCAINE
     Indication: NEUROPATHY PERIPHERAL
     Dates: start: 20131202
  25. CEFOTAXIME [Concomitant]
     Active Substance: CEFOTAXIME\CEFOTAXIME SODIUM
     Indication: COUGH
     Dates: start: 20130927, end: 20131004
  26. CEFOTAXIME [Concomitant]
     Active Substance: CEFOTAXIME\CEFOTAXIME SODIUM
     Indication: BRONCHOSPASM
  27. SPIRAMYCINE [Concomitant]
     Active Substance: SPIRAMYCIN
     Indication: COUGH
     Dates: start: 20130927, end: 20131011
  28. LOVENOX [Concomitant]
     Active Substance: ENOXAPARIN SODIUM
     Indication: THROMBOSIS PROPHYLAXIS
     Dates: start: 20130927, end: 20131003
  29. INEXIUM [Concomitant]
     Active Substance: ESOMEPRAZOLE
     Indication: GASTROOESOPHAGEAL REFLUX DISEASE
     Dates: end: 20131002
  30. ROVAMYCINE [Concomitant]
     Active Substance: SPIRAMYCIN
     Indication: BRONCHOSPASM
  31. DOMPERIDONE [Concomitant]
     Active Substance: DOMPERIDONE
     Indication: NAUSEA
     Dates: start: 20131004

REACTIONS (3)
  - Neuralgia [Not Recovered/Not Resolved]
  - Bronchospasm [Recovered/Resolved]
  - Cough [Not Recovered/Not Resolved]

NARRATIVE: CASE EVENT DATE: 20130917
